FAERS Safety Report 25100580 (Version 4)
Quarter: 2025Q2

REPORT INFORMATION
  Report Type: Report from Study
  Country: US (occurrence: US)
  Receive Date: 20250320
  Receipt Date: 20250620
  Transmission Date: 20250716
  Serious: No
  Sender: AGIOS PHARMACEUTICALS
  Company Number: US-AGIOS-2503US04126

PATIENT
  Sex: Female

DRUGS (1)
  1. MITAPIVAT [Suspect]
     Active Substance: MITAPIVAT
     Indication: Thalassaemia minor
     Route: 048
     Dates: start: 20250220

REACTIONS (12)
  - Arthralgia [Unknown]
  - Back pain [Unknown]
  - Off label use [Unknown]
  - Irritable bowel syndrome [Unknown]
  - Abdominal pain upper [Recovered/Resolved]
  - Diarrhoea [Unknown]
  - Platelet count decreased [Unknown]
  - Dry mouth [Unknown]
  - Gastritis [Unknown]
  - Abdominal discomfort [Unknown]
  - Shoulder arthroplasty [Unknown]
  - Irritable bowel syndrome [Recovered/Resolved]
